FAERS Safety Report 9493505 (Version 3)
Quarter: 2013Q4

REPORT INFORMATION
  Report Type: Spontaneous
  Country: FR (occurrence: FR)
  Receive Date: 20130902
  Receipt Date: 20131220
  Transmission Date: 20140711
  Serious: Yes (Other)
  Sender: FDA-Public Use
  Company Number: FR-PFIZER INC-2013248957

PATIENT
  Age: 70 Year
  Sex: Male

DRUGS (10)
  1. INSPRA [Suspect]
     Dosage: 25 MG, 2X/DAY
     Route: 048
     Dates: start: 201204, end: 201307
  2. XAGRID [Concomitant]
     Indication: ESSENTIAL THROMBOCYTHAEMIA
     Dosage: 0.5 MG AND 1 MG BY ALTERNANCE, DAILY
     Route: 048
     Dates: start: 200908, end: 2012
  3. PREVISCAN [Concomitant]
     Dosage: 20 MG, UNK
  4. BISOPROLOL FUMARATE [Concomitant]
     Dosage: UNK
  5. COVERSYL [Concomitant]
     Dosage: 2.5 MG, UNK
  6. DIFFU K [Concomitant]
  7. LASILIX [Concomitant]
     Dosage: 40 MG, UNK
  8. LASILIX [Concomitant]
     Dosage: 60 MG, DAILY
  9. TAHOR [Concomitant]
     Dosage: 80 MG, UNK
  10. PANTOPRAZOLE [Concomitant]

REACTIONS (2)
  - Renal failure [Recovered/Resolved]
  - Acute pulmonary oedema [Recovered/Resolved]
